FAERS Safety Report 18980395 (Version 1)
Quarter: 2021Q1

REPORT INFORMATION
  Report Type: Report from Study
  Country: DE (occurrence: DE)
  Receive Date: 20210308
  Receipt Date: 20210308
  Transmission Date: 20210420
  Serious: Yes (Other)
  Sender: FDA-Public Use
  Company Number: DE-PFIZER INC-2021238369

PATIENT
  Age: 34 Year
  Sex: Male

DRUGS (7)
  1. CYCLOPHOSPHAMIDE. [Suspect]
     Active Substance: CYCLOPHOSPHAMIDE
     Indication: BURKITT^S LYMPHOMA
     Dosage: 200 MG/M2, CYCLIC
  2. PREDNISONE. [Suspect]
     Active Substance: PREDNISONE
     Indication: BURKITT^S LYMPHOMA
     Dosage: 0.5?1 MG/KG ORALLY, CYCLIC
     Route: 048
  3. CYTARABINE. [Suspect]
     Active Substance: CYTARABINE
     Indication: BURKITT^S LYMPHOMA
     Dosage: 300 MG/M2 INTRAVENOUSLY OVER 1 H, CYCLIC
     Route: 042
  4. ADRIAMYCIN [Suspect]
     Active Substance: DOXORUBICIN HYDROCHLORIDE
     Indication: BURKITT^S LYMPHOMA
     Dosage: 50 MG/M2 INTRAVENOUSLY, CYCLIC
     Route: 042
  5. METHOTREXATE SODIUM. [Suspect]
     Active Substance: METHOTREXATE SODIUM
     Dosage: UNK, CYCLIC
     Route: 042
  6. TENIPOSIDE. [Suspect]
     Active Substance: TENIPOSIDE
     Indication: BURKITT^S LYMPHOMA
     Dosage: 165 MG/M2 INTRAVENOUSLY OVER 1 H, CYCLIC
     Route: 042
  7. METHOTREXATE SODIUM. [Suspect]
     Active Substance: METHOTREXATE SODIUM
     Indication: BURKITT^S LYMPHOMA
     Dosage: 15 MG INTRATHECALLY, CYCLIC
     Route: 037

REACTIONS (2)
  - Leukopenia [Unknown]
  - Anaemia [Unknown]
